FAERS Safety Report 13716625 (Version 3)
Quarter: 2017Q3

REPORT INFORMATION
  Report Type: Report from Study
  Country: US (occurrence: US)
  Receive Date: 20170705
  Receipt Date: 20170808
  Transmission Date: 20171127
  Serious: Yes (Hospitalization, Other)
  Sender: FDA-Public Use
  Company Number: PHEH2017US020237

PATIENT
  Age: 51 Year
  Sex: Female
  Weight: 47.62 kg

DRUGS (3)
  1. GILENYA [Suspect]
     Active Substance: FINGOLIMOD HYDROCHLORIDE
     Indication: MULTIPLE SCLEROSIS
     Dosage: 0.5 MG, QD
     Route: 048
     Dates: start: 20170419
  2. GILENYA [Suspect]
     Active Substance: FINGOLIMOD HYDROCHLORIDE
     Dosage: UNK
     Route: 065
  3. GILENYA [Suspect]
     Active Substance: FINGOLIMOD HYDROCHLORIDE
     Dosage: UNK
     Route: 065

REACTIONS (10)
  - Fall [Unknown]
  - Memory impairment [Unknown]
  - Hypokalaemia [Unknown]
  - Muscular weakness [Recovered/Resolved]
  - Postictal state [Unknown]
  - Multiple sclerosis [Unknown]
  - Partial seizures [Recovered/Resolved]
  - Asthenia [Recovered/Resolved]
  - Seizure [Recovering/Resolving]
  - Nervousness [Unknown]

NARRATIVE: CASE EVENT DATE: 2017
